FAERS Safety Report 4374283-0 (Version None)
Quarter: 2004Q2

REPORT INFORMATION
  Report Type: 
  Country: None (occurrence: None)
  Receive Date: 20040609
  Receipt Date: 20040601
  Transmission Date: 20050107
  Serious: Yes (Other)
  Sender: FDA-Public Use
  Company Number: PL-BRISTOL-MYERS SQUIBB COMPANY-12600318

PATIENT
  Age: 45 Year
  Sex: Female

DRUGS (6)
  1. CARBOPLATIN [Suspect]
     Indication: OVARIAN CANCER
     Dosage: CYCLE 1: 13JAN04 CYCLE 5 GIVEN 15APR04
     Route: 042
     Dates: start: 20040316, end: 20040316
  2. PACLITAXEL [Suspect]
     Indication: OVARIAN CANCER
     Dosage: CYCLE 1: 13JAN04 CYCLE 5 GIVEN 15APR04
     Route: 042
     Dates: start: 20040316, end: 20040316
  3. DEXAMETHASONE [Concomitant]
     Dates: start: 20040112
  4. CLEMASTINE [Concomitant]
     Dates: start: 20040113
  5. CIMETIDINE HCL [Concomitant]
     Dates: start: 20040113
  6. ONDANSETRON [Concomitant]
     Dates: start: 20040113

REACTIONS (1)
  - HEADACHE [None]
